FAERS Safety Report 9135776 (Version 1)
Quarter: 2013Q1

REPORT INFORMATION
  Report Type: Spontaneous
  Country: CA (occurrence: None)
  Receive Date: 20130225
  Receipt Date: 20130225
  Transmission Date: 20140127
  Serious: Yes (Death)
  Sender: FDA-Public Use
  Company Number: 2013US002044

PATIENT
  Age: 65 Year
  Sex: Male

DRUGS (1)
  1. TARCEVA (ERLOTINIB HYDROCHLORIDE) TABLET [Suspect]
     Indication: LUNG NEOPLASM MALIGNANT
     Dosage: 150  MG,  UID/QD,  ORAL?11/22/2012  TO  UNK
     Route: 048
     Dates: start: 20121122

REACTIONS (2)
  - Dysphagia [None]
  - Dyspepsia [None]
